FAERS Safety Report 14665271 (Version 4)
Quarter: 2019Q1

REPORT INFORMATION
  Report Type: Spontaneous
  Country: US (occurrence: US)
  Receive Date: 20180321
  Receipt Date: 20190104
  Transmission Date: 20190417
  Serious: Yes (Other)
  Sender: FDA-Public Use
  Company Number: US-ASTRAZENECA-2018SE33599

PATIENT
  Age: 17271 Day
  Sex: Male
  Weight: 86.2 kg

DRUGS (40)
  1. NEXIUM [Suspect]
     Active Substance: ESOMEPRAZOLE MAGNESIUM
     Indication: GASTROOESOPHAGEAL REFLUX DISEASE
     Route: 048
     Dates: start: 201202, end: 201605
  2. ROLAIDS [Concomitant]
     Active Substance: CALCIUM CARBONATE\MAGNESIUM HYDROXIDE
     Dates: start: 2004, end: 2005
  3. PROVENTIL HFA [Concomitant]
     Active Substance: ALBUTEROL SULFATE
     Dosage: 108 (90 BASE) MCG/ACT INHALER; 2 PUFFS
     Route: 055
     Dates: start: 20120628, end: 20130517
  4. CYMBALTA [Concomitant]
     Active Substance: DULOXETINE HYDROCHLORIDE
     Route: 048
     Dates: start: 20131209, end: 20141120
  5. NEXIUM [Suspect]
     Active Substance: ESOMEPRAZOLE MAGNESIUM
     Indication: GASTROOESOPHAGEAL REFLUX DISEASE
     Dosage: 40.0MG UNKNOWN
     Route: 048
     Dates: start: 20130213
  6. CITALOPRAM [Concomitant]
     Active Substance: CITALOPRAM HYDROBROMIDE
  7. PHENERGAN [Concomitant]
     Active Substance: PROMETHAZINE HYDROCHLORIDE
     Route: 048
  8. AMLODIPINE BESYLATE. [Concomitant]
     Active Substance: AMLODIPINE BESYLATE
  9. COZAAR [Concomitant]
     Active Substance: LOSARTAN POTASSIUM
     Route: 048
     Dates: start: 20131220, end: 20140623
  10. TUMS [Concomitant]
     Active Substance: CALCIUM CARBONATE
     Dates: start: 2004, end: 2005
  11. CELEXA [Concomitant]
     Active Substance: CITALOPRAM HYDROBROMIDE
     Route: 048
     Dates: start: 20120410, end: 20121105
  12. EFFEXOR XR [Concomitant]
     Active Substance: VENLAFAXINE HYDROCHLORIDE
     Route: 048
     Dates: start: 20131220, end: 20140623
  13. PROAIR HFA [Concomitant]
     Active Substance: ALBUTEROL SULFATE
     Route: 048
     Dates: start: 20131220, end: 20140623
  14. TORADOL [Concomitant]
     Active Substance: KETOROLAC TROMETHAMINE
     Route: 048
     Dates: start: 20131220, end: 20140623
  15. NEXIUM [Suspect]
     Active Substance: ESOMEPRAZOLE MAGNESIUM
     Indication: GASTROOESOPHAGEAL REFLUX DISEASE
     Route: 048
     Dates: start: 2006, end: 2016
  16. PRILOSEC [Suspect]
     Active Substance: OMEPRAZOLE MAGNESIUM
     Indication: GASTROOESOPHAGEAL REFLUX DISEASE
     Route: 065
     Dates: start: 201402, end: 201403
  17. SERTRALINE [Concomitant]
     Active Substance: SERTRALINE HYDROCHLORIDE
     Route: 048
  18. PRINIVIL [Concomitant]
     Active Substance: LISINOPRIL
     Route: 048
     Dates: end: 20120517
  19. VICODIN [Concomitant]
     Active Substance: ACETAMINOPHEN\HYDROCODONE BITARTRATE
     Dosage: 5-500 MG
     Route: 048
     Dates: end: 20120517
  20. BACTRIM DS [Concomitant]
     Active Substance: SULFAMETHOXAZOLE\TRIMETHOPRIM
     Dosage: 800-160 MG
     Route: 048
     Dates: start: 20121031
  21. DELTASONE [Concomitant]
     Active Substance: PREDNISONE
     Route: 048
     Dates: start: 20130307, end: 20130313
  22. BIAXIN [Concomitant]
     Active Substance: CLARITHROMYCIN
     Route: 048
     Dates: start: 20130718
  23. CEFTIN [Concomitant]
     Active Substance: CEFUROXIME AXETIL
     Route: 048
     Dates: start: 20130718
  24. CLINORIL [Concomitant]
     Active Substance: SULINDAC
     Route: 048
     Dates: start: 20131108, end: 20140307
  25. BENICAR [Concomitant]
     Active Substance: OLMESARTAN MEDOXOMIL
     Route: 048
     Dates: start: 20131220, end: 20140623
  26. SKELAXIN [Concomitant]
     Active Substance: METAXALONE
     Route: 048
     Dates: start: 20131220, end: 20140623
  27. PRILOSEC [Suspect]
     Active Substance: OMEPRAZOLE MAGNESIUM
     Indication: GASTROOESOPHAGEAL REFLUX DISEASE
     Route: 048
     Dates: start: 20140224, end: 20140516
  28. PREVACID [Suspect]
     Active Substance: LANSOPRAZOLE
     Indication: GASTROOESOPHAGEAL REFLUX DISEASE
     Route: 048
     Dates: end: 20130213
  29. BACLOFEN. [Concomitant]
     Active Substance: BACLOFEN
  30. OPANA [Concomitant]
     Active Substance: OXYMORPHONE HYDROCHLORIDE
     Route: 048
     Dates: start: 20120405
  31. HYDROCODONE [Concomitant]
     Active Substance: HYDROCODONE
     Dosage: 5/500
     Route: 048
  32. LISINOPRIL. [Concomitant]
     Active Substance: LISINOPRIL
     Route: 048
     Dates: start: 20131220, end: 20140623
  33. PREVACID [Suspect]
     Active Substance: LANSOPRAZOLE
     Indication: GASTROOESOPHAGEAL REFLUX DISEASE
     Route: 065
     Dates: start: 200608, end: 200812
  34. FLEXERIL [Concomitant]
     Active Substance: CYCLOBENZAPRINE HYDROCHLORIDE
  35. ZOCOR [Concomitant]
     Active Substance: SIMVASTATIN
     Route: 048
  36. MELOXICAM. [Concomitant]
     Active Substance: MELOXICAM
     Route: 048
     Dates: start: 20131220, end: 20140623
  37. SIMVASTATIN. [Concomitant]
     Active Substance: SIMVASTATIN
     Route: 048
     Dates: start: 20131220, end: 20140623
  38. PREVACID [Suspect]
     Active Substance: LANSOPRAZOLE
     Indication: GASTROOESOPHAGEAL REFLUX DISEASE
     Route: 065
     Dates: start: 2006, end: 2016
  39. MOBIC [Concomitant]
     Active Substance: MELOXICAM
     Route: 048
     Dates: end: 20120517
  40. ZITHROMAX [Concomitant]
     Active Substance: AZITHROMYCIN DIHYDRATE
     Route: 048
     Dates: start: 20131220, end: 20140623

REACTIONS (1)
  - Chronic kidney disease [Not Recovered/Not Resolved]

NARRATIVE: CASE EVENT DATE: 20130925
